FAERS Safety Report 21696227 (Version 1)
Quarter: 2022Q4

REPORT INFORMATION
  Report Type: Spontaneous
  Country: SK (occurrence: SK)
  Receive Date: 20221207
  Receipt Date: 20221207
  Transmission Date: 20230113
  Serious: Yes (Death, Hospitalization, Other)
  Sender: FDA-Public Use
  Company Number: SK-Merck Healthcare KGaA-9367499

PATIENT
  Age: 62 Year

DRUGS (2)
  1. ERBITUX [Suspect]
     Active Substance: CETUXIMAB
     Indication: Rectal cancer
     Dosage: UNK UNK, UNKNOWN
     Route: 065
     Dates: start: 202109
  2. ENCORAFENIB [Concomitant]
     Active Substance: ENCORAFENIB
     Indication: Rectal cancer
     Dosage: 2 DOSAGE FORM, DAILY
     Dates: start: 202109

REACTIONS (4)
  - Death [Fatal]
  - Anaemia [Unknown]
  - Malignant neoplasm progression [Unknown]
  - Off label use [Unknown]

NARRATIVE: CASE EVENT DATE: 20220201
